FAERS Safety Report 6225816-0 (Version None)
Quarter: 2009Q2

REPORT INFORMATION
  Report Type: 
  Country: None (occurrence: None)
  Receive Date: 20090612
  Receipt Date: 20090427
  Transmission Date: 20091009
  Serious: No
  Sender: FDA-Public Use
  Company Number: US-ABBOTT-09P-163-0570077-00

PATIENT
  Sex: Female
  Weight: 69.462 kg

DRUGS (2)
  1. HUMIRA [Suspect]
     Indication: PSORIASIS
     Dosage: (160MG)
     Dates: start: 20090319
  2. HUMIRA [Suspect]

REACTIONS (4)
  - HEADACHE [None]
  - INJECTION SITE HAEMORRHAGE [None]
  - PSORIASIS [None]
  - RASH [None]
